FAERS Safety Report 6335839-9 (Version None)
Quarter: 2009Q3

REPORT INFORMATION
  Report Type: 
  Country: None (occurrence: None)
  Receive Date: 20090828
  Receipt Date: 20090819
  Transmission Date: 20100115
  Serious: Yes (Other)
  Sender: FDA-Public Use
  Company Number: A-CH2009-26967

PATIENT
  Age: 66 Year
  Sex: Female

DRUGS (7)
  1. TRACLEER [Suspect]
     Indication: PULMONARY ARTERIAL HYPERTENSION
     Dosage: 62.5 MG, Q1WEEK, ORAL; 93.75 MG, Q1WEEK,
     Route: 048
     Dates: start: 20061101, end: 20090504
  2. TRACLEER [Suspect]
     Indication: PULMONARY ARTERIAL HYPERTENSION
     Dosage: 62.5 MG, Q1WEEK, ORAL; 93.75 MG, Q1WEEK,
     Route: 048
     Dates: start: 20090701, end: 20090714
  3. TRACLEER [Suspect]
     Indication: PULMONARY ARTERIAL HYPERTENSION
     Dosage: 62.5 MG, Q1WEEK, ORAL; 93.75 MG, Q1WEEK,
     Route: 048
     Dates: start: 20090715, end: 20090729
  4. METHOTREXATE SODIUM [Suspect]
     Dates: start: 20090101
  5. WARFARIN SODIUM [Concomitant]
     Dates: end: 20090101
  6. NEXIUM      (ESOMEPRAZOLE SODIUM) [Concomitant]
  7. CARDIZEM [Concomitant]

REACTIONS (8)
  - ALANINE AMINOTRANSFERASE INCREASED [None]
  - ASPARTATE AMINOTRANSFERASE INCREASED [None]
  - BLOOD ALKALINE PHOSPHATASE INCREASED [None]
  - BLOOD BILIRUBIN INCREASED [None]
  - BLOOD LACTATE DEHYDROGENASE INCREASED [None]
  - DRUG INTERACTION [None]
  - GAMMA-GLUTAMYLTRANSFERASE INCREASED [None]
  - MALAISE [None]
